FAERS Safety Report 6565896-6 (Version None)
Quarter: 2010Q1

REPORT INFORMATION
  Report Type: 
  Country: None (occurrence: None)
  Receive Date: 20100201
  Receipt Date: 20100120
  Transmission Date: 20100710
  Serious: Yes (Hospitalization)
  Sender: FDA-Public Use
  Company Number: AU-GENENTECH-296330

PATIENT
  Sex: Male
  Weight: 170 kg

DRUGS (1)
  1. LUCENTIS [Suspect]
     Indication: MACULAR DEGENERATION
     Dosage: UNK
     Route: 031
     Dates: start: 20090101

REACTIONS (4)
  - CARCINOID TUMOUR [None]
  - HYPOGLYCAEMIA [None]
  - METASTASES TO LIVER [None]
  - SYNCOPE [None]
